FAERS Safety Report 19095644 (Version 1)
Quarter: 2021Q2

REPORT INFORMATION
  Report Type: Spontaneous
  Country: CN (occurrence: CN)
  Receive Date: 20210406
  Receipt Date: 20210406
  Transmission Date: 20210717
  Serious: Yes (Other)
  Sender: FDA-Public Use
  Company Number: CN-CHEPLA-C20211571

PATIENT
  Age: 42 Year
  Sex: Female
  Weight: 43 kg

DRUGS (6)
  1. SODIUM CHLORIDE. [Concomitant]
     Active Substance: SODIUM CHLORIDE
     Indication: ASPERGILLUS INFECTION
     Dosage: 250 ML, SINGLE
     Dates: start: 20210119, end: 20210119
  2. GANCICLOVIR. [Suspect]
     Active Substance: GANCICLOVIR
     Indication: CYTOMEGALOVIRUS INFECTION
     Dosage: 0.2 G, BID (ALSO REPORTED AS Q12H), INJECTION
     Dates: start: 20210119, end: 20210121
  3. CANCIDAS [Suspect]
     Active Substance: CASPOFUNGIN ACETATE
     Indication: ASPERGILLUS INFECTION
     Dosage: 70 MG, ONCE (ALSO REPORTED AS QD)
     Dates: start: 20210119, end: 20210119
  4. CANCIDAS [Suspect]
     Active Substance: CASPOFUNGIN ACETATE
     Indication: ASPERGILLUS INFECTION
     Dosage: 50 MG, DAILY
     Dates: start: 20210120, end: 20210120
  5. SODIUM CHLORIDE. [Concomitant]
     Active Substance: SODIUM CHLORIDE
     Indication: ASPERGILLUS INFECTION
     Dosage: 100 ML, BID
     Dates: start: 20210119, end: 20210121
  6. SODIUM CHLORIDE. [Concomitant]
     Active Substance: SODIUM CHLORIDE
     Indication: ASPERGILLUS INFECTION
     Dosage: 250 ML, SINGLE
     Dates: start: 20210120, end: 20210120

REACTIONS (7)
  - Red blood cells urine positive [Unknown]
  - Urinary incontinence [Recovering/Resolving]
  - Renal cyst [Unknown]
  - Nocturia [Unknown]
  - Nephrolithiasis [Unknown]
  - White blood cells urine positive [Unknown]
  - Sleep disorder [Unknown]

NARRATIVE: CASE EVENT DATE: 20210121
